FAERS Safety Report 18536785 (Version 1)
Quarter: 2020Q4

REPORT INFORMATION
  Report Type: Spontaneous
  Country: IT (occurrence: IT)
  Receive Date: 20201124
  Receipt Date: 20201124
  Transmission Date: 20210114
  Serious: Yes (Hospitalization)
  Sender: FDA-Public Use
  Company Number: IT-SUN PHARMACEUTICAL INDUSTRIES LTD-2020RR-268601

PATIENT
  Age: 42 Year
  Sex: Female

DRUGS (4)
  1. LAROXYL 25 MG COMPRESSE RIVESTITE [Suspect]
     Active Substance: AMITRIPTYLINE HYDROCHLORIDE
     Indication: DEPRESSION
     Dosage: 125 MILLIGRAM, IN TOTAL
     Route: 048
  2. OLANZAPINE. [Suspect]
     Active Substance: OLANZAPINE
     Indication: PSYCHOTIC DISORDER
     Dosage: 25 MILLIGRAM, IN TOTAL
     Route: 048
  3. DIAZEPAM. [Suspect]
     Active Substance: DIAZEPAM
     Indication: ANXIETY
     Dosage: 20 MILLILITER, IN TOTAL
     Route: 048
  4. TRILAFON [Suspect]
     Active Substance: PERPHENAZINE
     Indication: PSYCHOTIC DISORDER
     Dosage: 10 MILLIGRAM, IN TOTAL
     Route: 048

REACTIONS (1)
  - Bradyphrenia [Recovered/Resolved]

NARRATIVE: CASE EVENT DATE: 20200120
